FAERS Safety Report 16170788 (Version 1)
Quarter: 2019Q2

REPORT INFORMATION
  Report Type: Spontaneous
  Country: ES (occurrence: ES)
  Receive Date: 20190408
  Receipt Date: 20190408
  Transmission Date: 20190711
  Serious: Yes (Other)
  Sender: FDA-Public Use
  Company Number: ES-MYLANLABS-2019M1031472

PATIENT
  Age: 59 Year
  Sex: Female

DRUGS (3)
  1. CLARITHROMYCIN. [Suspect]
     Active Substance: CLARITHROMYCIN
     Indication: OTITIS MEDIA
     Dosage: 250 MILLIGRAM, BID
     Route: 048
     Dates: start: 20180809, end: 20180809
  2. ENANTYUM [Suspect]
     Active Substance: DEXKETOPROFEN TROMETAMOL
     Indication: OTITIS MEDIA
     Dosage: 25 MILLIGRAM, Q8H
     Route: 048
     Dates: start: 20180809, end: 20180809
  3. ZALDIAR [Suspect]
     Active Substance: ACETAMINOPHEN\TRAMADOL HYDROCHLORIDE
     Indication: OTITIS MEDIA
     Dosage: 1 DOSAGE FORM, Q8H
     Route: 048
     Dates: start: 20180809, end: 20180809

REACTIONS (5)
  - Rectal haemorrhage [Recovered/Resolved]
  - Swollen tongue [Recovered/Resolved]
  - Dyspepsia [Recovered/Resolved]
  - Muscular weakness [Recovered/Resolved]
  - Diarrhoea [Recovered/Resolved]

NARRATIVE: CASE EVENT DATE: 20180809
